FAERS Safety Report 13893131 (Version 1)
Quarter: 2017Q3

REPORT INFORMATION
  Report Type: Spontaneous
  Country: US (occurrence: US)
  Receive Date: 20170822
  Receipt Date: 20170822
  Transmission Date: 20171127
  Serious: No
  Sender: FDA-Public Use
  Company Number: US-ROCHE-1219353

PATIENT
  Age: 52 Year
  Sex: Female
  Weight: 67 kg

DRUGS (2)
  1. HERCEPTIN [Suspect]
     Active Substance: TRASTUZUMAB
     Indication: BREAST CANCER
     Route: 065
     Dates: start: 20121009
  2. HERCEPTIN [Suspect]
     Active Substance: TRASTUZUMAB
     Route: 065

REACTIONS (2)
  - Medication error [Unknown]
  - Incorrect dose administered [Unknown]

NARRATIVE: CASE EVENT DATE: 20121009
